FAERS Safety Report 6931377-0 (Version None)
Quarter: 2010Q3

REPORT INFORMATION
  Report Type: 
  Country: None (occurrence: None)
  Receive Date: 20100819
  Receipt Date: 19990628
  Transmission Date: 20110219
  Serious: No
  Sender: FDA-Public Use
  Company Number: M093613

PATIENT
  Age: 19 Year
  Sex: Female

DRUGS (3)
  1. ZERIT [Suspect]
     Indication: HIV INFECTION
     Dosage: DOSE UNIT: MILLIGRAM PER DAY
     Route: 048
     Dates: start: 19920101
  2. EPIVIR [Suspect]
     Indication: HIV INFECTION
     Dosage: DOSE UNIT: MILLIGRAM PER DAY
     Route: 048
     Dates: start: 19920101
  3. BACTRIM [Suspect]
     Dates: start: 19950101

REACTIONS (3)
  - DRUG EXPOSURE DURING PREGNANCY [None]
  - NORMAL NEWBORN [None]
  - PRE-ECLAMPSIA [None]
